FAERS Safety Report 5090802-3 (Version None)
Quarter: 2006Q3

REPORT INFORMATION
  Report Type: 
  Country: None (occurrence: None)
  Receive Date: 20060823
  Receipt Date: 20060808
  Transmission Date: 20061208
  Serious: Yes (Other)
  Sender: FDA-Public Use
  Company Number: 2006-08-0008

PATIENT
  Sex: 0

DRUGS (1)
  1. LISINO               (LORATADINE)       SYRUP [Suspect]
     Indication: HYPERSENSITIVITY
     Dosage: ORAL
     Route: 048

REACTIONS (1)
  - CHOLESTASIS [None]
